FAERS Safety Report 16231722 (Version 2)
Quarter: 2019Q2

REPORT INFORMATION
  Report Type: Spontaneous
  Country: GB (occurrence: GB)
  Receive Date: 20190424
  Receipt Date: 20190424
  Transmission Date: 20190711
  Serious: No
  Sender: FDA-Public Use
  Company Number: GB-JNJFOC-20190423880

PATIENT
  Sex: Female

DRUGS (1)
  1. CALPOL [Suspect]
     Active Substance: ACETAMINOPHEN
     Indication: SLEEP DISORDER THERAPY
     Route: 048

REACTIONS (5)
  - Accidental exposure to product by child [Unknown]
  - Therapeutic response unexpected [Unknown]
  - Failure of child resistant mechanism for pharmaceutical product [Unknown]
  - Accidental overdose [Unknown]
  - Product use in unapproved indication [Unknown]
